FAERS Safety Report 14816363 (Version 2)
Quarter: 2023Q2

REPORT INFORMATION
  Report Type: Report from Study
  Country: DE (occurrence: DE)
  Receive Date: 20180426
  Receipt Date: 20230613
  Transmission Date: 20230721
  Serious: Yes (Hospitalization)
  Sender: FDA-Public Use
  Company Number: DE-SHIRE-DE201815360

PATIENT
  Age: 16 Year
  Sex: Male

DRUGS (13)
  1. IDURSULFASE [Suspect]
     Active Substance: IDURSULFASE
     Indication: Mucopolysaccharidosis II
     Dosage: 0.5 MILLIGRAM/KILOGRAM, 1/WEEK
     Route: 042
     Dates: start: 20040109
  2. ENALAPRIL [Concomitant]
     Active Substance: ENALAPRIL
     Indication: Cardiovascular disorder
     Dosage: UNK
     Route: 048
     Dates: start: 20030808, end: 20111101
  3. CEFUROXIME [Concomitant]
     Active Substance: CEFUROXIME
     Indication: Antibiotic prophylaxis
     Dosage: UNK
     Route: 050
     Dates: start: 20080722, end: 20080724
  4. CEFUROXIME [Concomitant]
     Active Substance: CEFUROXIME
     Indication: Cellulitis
     Dosage: UNK
     Route: 050
     Dates: start: 20121221, end: 20121227
  5. DIMENHYDRINATE [Concomitant]
     Active Substance: DIMENHYDRINATE
     Dosage: UNK
     Route: 054
     Dates: start: 20040108, end: 20040108
  6. RAMIPRIL [Concomitant]
     Active Substance: RAMIPRIL
     Indication: Cardiovascular disorder
     Dosage: UNK
     Route: 048
     Dates: start: 20110601
  7. AMPICILLIN [Concomitant]
     Active Substance: AMPICILLIN
     Indication: Cellulitis
     Dosage: UNK
     Route: 042
     Dates: start: 20121217, end: 20121221
  8. ENOXAPARIN SODIUM [Concomitant]
     Active Substance: ENOXAPARIN SODIUM
     Indication: Cellulitis
     Dosage: UNK
     Route: 030
     Dates: start: 20121217, end: 20121221
  9. FLOXAL [Concomitant]
     Active Substance: OFLOXACIN
     Indication: Cellulitis
     Dosage: UNK
     Route: 050
     Dates: start: 20121217, end: 20121221
  10. BACLOFEN [Concomitant]
     Active Substance: BACLOFEN
     Indication: Back pain
     Dosage: UNK
     Route: 048
     Dates: start: 20200318, end: 20200526
  11. BACLOFEN [Concomitant]
     Active Substance: BACLOFEN
     Indication: Restless legs syndrome
  12. DEXAMETHASONE [Concomitant]
     Active Substance: DEXAMETHASONE
     Indication: Back pain
     Dosage: UNK
     Route: 048
     Dates: start: 20200407, end: 20200601
  13. DEXAMETHASONE [Concomitant]
     Active Substance: DEXAMETHASONE
     Indication: Restless legs syndrome

REACTIONS (1)
  - Carpal tunnel syndrome [Recovered/Resolved with Sequelae]

NARRATIVE: CASE EVENT DATE: 20080701
